FAERS Safety Report 6481539-4 (Version None)
Quarter: 2009Q4

REPORT INFORMATION
  Report Type: 
  Country: None (occurrence: None)
  Receive Date: 20091208
  Receipt Date: 20091130
  Transmission Date: 20100525
  Serious: Yes (Hospitalization)
  Sender: FDA-Public Use
  Company Number: HK-ROCHE-672787

PATIENT
  Sex: Male
  Weight: 75 kg

DRUGS (3)
  1. BEVACIZUMAB [Suspect]
     Route: 042
  2. TEMSIROLIMUS [Suspect]
     Route: 042
  3. NIFEDIPINE [Concomitant]
     Indication: HYPERTENSION
     Route: 048
     Dates: start: 20091029

REACTIONS (1)
  - SKIN ULCER [None]
